FAERS Safety Report 23145069 (Version 2)
Quarter: 2023Q4

REPORT INFORMATION
  Report Type: Spontaneous
  Country: DE (occurrence: DE)
  Receive Date: 20231103
  Receipt Date: 20231123
  Transmission Date: 20240110
  Serious: Yes (Hospitalization, Other)
  Sender: FDA-Public Use
  Company Number: DE-JNJFOC-20230510845

PATIENT
  Age: 85 Year
  Sex: Female
  Weight: 40 kg

DRUGS (27)
  1. DEXAMETHASONE [Suspect]
     Active Substance: DEXAMETHASONE
     Indication: Plasma cell myeloma
     Dosage: 20 MG, QD (CYCLE 1,8,15,22)
     Route: 042
     Dates: start: 20230322
  2. DEXAMETHASONE [Suspect]
     Active Substance: DEXAMETHASONE
     Dosage: 20 MG
     Route: 042
     Dates: start: 20230510
  3. DEXAMETHASONE [Suspect]
     Active Substance: DEXAMETHASONE
     Dosage: 20 MG
     Route: 042
     Dates: start: 20230517
  4. DEXAMETHASONE [Suspect]
     Active Substance: DEXAMETHASONE
     Dosage: 20 MG (CYCLE 1)
     Route: 042
     Dates: start: 20230329
  5. DEXAMETHASONE [Suspect]
     Active Substance: DEXAMETHASONE
     Dosage: 20 MG (CYCLE 1)
     Route: 042
     Dates: start: 20230405
  6. DEXAMETHASONE [Suspect]
     Active Substance: DEXAMETHASONE
     Dosage: 20 MG (CYCLE 1)
     Route: 042
     Dates: start: 20230412
  7. DEXAMETHASONE [Suspect]
     Active Substance: DEXAMETHASONE
     Dosage: 20 MG (CYCLE 2)
     Route: 042
     Dates: start: 20230419
  8. DARZALEX [Suspect]
     Active Substance: DARATUMUMAB
     Dosage: 1800 MG, QD (1800 MG/DAY CYCLE 1, 8, 15, 22)
     Route: 059
     Dates: start: 20230322
  9. DARZALEX [Suspect]
     Active Substance: DARATUMUMAB
     Indication: Plasma cell myeloma
     Dosage: 1800 MG, QD (CYCLE 1, 8, 15, 22)
     Route: 058
     Dates: start: 20230322
  10. DARZALEX [Suspect]
     Active Substance: DARATUMUMAB
     Dosage: 1800 MG
     Route: 058
     Dates: start: 20230510
  11. DARZALEX [Suspect]
     Active Substance: DARATUMUMAB
     Dosage: 1800 MG
     Route: 058
     Dates: start: 20230517
  12. DARZALEX [Suspect]
     Active Substance: DARATUMUMAB
     Dosage: 1800 MG
     Route: 059
     Dates: start: 20230510
  13. DARZALEX [Suspect]
     Active Substance: DARATUMUMAB
     Dosage: 1800 MG
     Route: 059
     Dates: start: 20230517
  14. DARZALEX [Suspect]
     Active Substance: DARATUMUMAB
     Dosage: 1800 MG (CYCLE 1)
     Route: 058
     Dates: start: 20230329
  15. DARZALEX [Suspect]
     Active Substance: DARATUMUMAB
     Dosage: 1800 MG (CYCLE 1)
     Route: 058
     Dates: start: 20230405
  16. DARZALEX [Suspect]
     Active Substance: DARATUMUMAB
     Dosage: 1800 MG (CYCLE 1)
     Route: 058
     Dates: start: 20230412
  17. DARZALEX [Suspect]
     Active Substance: DARATUMUMAB
     Dosage: 1800 MG (CYCLE 1)
     Route: 059
     Dates: start: 20230329
  18. DARZALEX [Suspect]
     Active Substance: DARATUMUMAB
     Dosage: 1800 MG (CYCLE 1)
     Route: 059
     Dates: start: 20230405
  19. DARZALEX [Suspect]
     Active Substance: DARATUMUMAB
     Dosage: 1800 MG (CYCLE 1)
     Route: 059
     Dates: start: 20230412
  20. DARZALEX [Suspect]
     Active Substance: DARATUMUMAB
     Dosage: 1800 MG (CYCLE 2)
     Route: 058
     Dates: start: 20230419
  21. DARZALEX [Suspect]
     Active Substance: DARATUMUMAB
     Dosage: 1800 MG (CYCLE 2)
     Route: 059
     Dates: start: 20230419
  22. LENALIDOMIDE [Suspect]
     Active Substance: LENALIDOMIDE
     Indication: Plasma cell myeloma
     Dosage: 15 MG, QD (CYCLE 1-21)
     Route: 048
     Dates: start: 20230322, end: 20230411
  23. LENALIDOMIDE [Suspect]
     Active Substance: LENALIDOMIDE
     Dosage: UNK
     Route: 048
     Dates: start: 20230510
  24. LENALIDOMIDE [Suspect]
     Active Substance: LENALIDOMIDE
     Dosage: 15 MG (CYCLE 2)
     Route: 048
     Dates: start: 20230419, end: 20230424
  25. BISOPROLOL [Concomitant]
     Active Substance: BISOPROLOL\BISOPROLOL FUMARATE
     Indication: Product used for unknown indication
     Dosage: UNK
     Route: 065
  26. EDOXABAN TOSYLATE [Concomitant]
     Active Substance: EDOXABAN TOSYLATE
     Indication: Product used for unknown indication
     Dosage: UNK
     Route: 065
  27. VALSARTAN [Concomitant]
     Active Substance: VALSARTAN
     Indication: Product used for unknown indication
     Dosage: UNK
     Route: 065

REACTIONS (4)
  - Pancytopenia [Not Recovered/Not Resolved]
  - Leukopenia [Recovered/Resolved]
  - Anaemia [Recovered/Resolved]
  - Anaemia [Recovered/Resolved]

NARRATIVE: CASE EVENT DATE: 20230425
